FAERS Safety Report 7461299-0 (Version None)
Quarter: 2011Q2

REPORT INFORMATION
  Report Type: 
  Country: None (occurrence: None)
  Receive Date: 20110506
  Receipt Date: 20110426
  Transmission Date: 20111010
  Serious: Yes (Hospitalization)
  Sender: FDA-Public Use
  Company Number: US-BIOGENIDEC-2011BI015950

PATIENT
  Age: 49 Year
  Sex: Female

DRUGS (5)
  1. AVONEX [Concomitant]
     Route: 030
     Dates: end: 20060701
  2. AVONEX [Concomitant]
     Indication: MULTIPLE SCLEROSIS
     Route: 030
     Dates: start: 19980601
  3. AVONEX [Concomitant]
     Route: 030
     Dates: end: 20060701
  4. TYSABRI [Suspect]
     Indication: MULTIPLE SCLEROSIS
     Route: 042
     Dates: start: 20060101
  5. AVONEX [Concomitant]
     Route: 030
     Dates: start: 19980601

REACTIONS (12)
  - ABDOMINAL PAIN UPPER [None]
  - LOWER RESPIRATORY TRACT INFECTION [None]
  - FATIGUE [None]
  - MULTIPLE SCLEROSIS RELAPSE [None]
  - WEIGHT DECREASED [None]
  - OSTEOPOROSIS [None]
  - MEMORY IMPAIRMENT [None]
  - CYSTITIS [None]
  - NASOPHARYNGITIS [None]
  - MIGRAINE [None]
  - MUSCLE SPASTICITY [None]
  - INFLUENZA [None]
